FAERS Safety Report 7953804-2 (Version None)
Quarter: 2011Q4

REPORT INFORMATION
  Report Type: 
  Country: None (occurrence: None)
  Receive Date: 20111202
  Receipt Date: 20111123
  Transmission Date: 20120403
  Serious: Yes (Hospitalization)
  Sender: FDA-Public Use
  Company Number: US-BAYER-2011-027514

PATIENT
  Age: 18 Year
  Sex: Female
  Weight: 61.224 kg

DRUGS (4)
  1. DROSPIRENONE AND ETHINYL ESTRADIOL [Suspect]
     Indication: CYST
     Dosage: UNK
     Dates: start: 20060101, end: 20110101
  2. FLUDROCORTISONE ACETATE [Concomitant]
     Indication: VOLUME BLOOD DECREASED
     Dosage: UNK
     Route: 048
     Dates: start: 20080701
  3. NSAID'S [Concomitant]
     Dosage: UNK
     Route: 048
     Dates: start: 20040101, end: 20100101
  4. YASMIN [Suspect]
     Indication: CYST
     Dosage: UNK
     Dates: start: 20060101, end: 20110101

REACTIONS (7)
  - INJURY [None]
  - ANXIETY [None]
  - EMOTIONAL DISTRESS [None]
  - PAIN [None]
  - ANHEDONIA [None]
  - CHOLECYSTECTOMY [None]
  - GENERAL PHYSICAL HEALTH DETERIORATION [None]
